FAERS Safety Report 6882976-6 (Version None)
Quarter: 2010Q3

REPORT INFORMATION
  Report Type: 
  Country: None (occurrence: None)
  Receive Date: 20100727
  Receipt Date: 20100712
  Transmission Date: 20110219
  Serious: Yes (Death)
  Sender: FDA-Public Use
  Company Number: 1000015212

PATIENT
  Age: 50 Year
  Sex: Female

DRUGS (5)
  1. CITALOPRAM HYDROBROMIDE [Suspect]
     Indication: PSYCHOTIC DISORDER
  2. CLONAZEPAM [Suspect]
     Indication: PSYCHOTIC DISORDER
  3. MIRTAZAPINE [Suspect]
     Indication: PSYCHOTIC DISORDER
  4. PROCYCLIDINE HYDROCHLORIDE 2MG TAB [Suspect]
     Indication: PSYCHOTIC DISORDER
  5. RISPERIDONE [Suspect]
     Indication: PSYCHOTIC DISORDER

REACTIONS (6)
  - BRAIN DEATH [None]
  - BRAIN OEDEMA [None]
  - HYPONATRAEMIA [None]
  - INAPPROPRIATE ANTIDIURETIC HORMONE SECRETION [None]
  - POLYDIPSIA [None]
  - RESPIRATORY ARREST [None]
